FAERS Safety Report 24574721 (Version 2)
Quarter: 2025Q1

REPORT INFORMATION
  Report Type: Spontaneous
  Country: DE (occurrence: DE)
  Receive Date: 20241104
  Receipt Date: 20250104
  Transmission Date: 20250408
  Serious: Yes (Other)
  Sender: AUROBINDO
  Company Number: DE-AUROBINDO-AUR-APL-2024-053283

PATIENT
  Age: 23 Year
  Sex: Male

DRUGS (24)
  1. DOCETAXEL [Suspect]
     Active Substance: DOCETAXEL
     Indication: Osteosarcoma
     Route: 065
  2. DOCETAXEL [Suspect]
     Active Substance: DOCETAXEL
     Indication: Metastases to lung
  3. DOCETAXEL [Suspect]
     Active Substance: DOCETAXEL
     Indication: PIK3CA-activated mutation
  4. GEMCITABINE [Suspect]
     Active Substance: GEMCITABINE
     Indication: PIK3CA-activated mutation
     Route: 065
  5. GEMCITABINE [Suspect]
     Active Substance: GEMCITABINE
     Indication: Osteosarcoma
  6. GEMCITABINE [Suspect]
     Active Substance: GEMCITABINE
     Indication: Metastases to lung
  7. CABOZANTINIB [Suspect]
     Active Substance: CABOZANTINIB
     Indication: PIK3CA-activated mutation
     Route: 065
  8. CABOZANTINIB [Suspect]
     Active Substance: CABOZANTINIB
     Indication: Metastases to lung
  9. CABOZANTINIB [Suspect]
     Active Substance: CABOZANTINIB
     Indication: Osteosarcoma
  10. OLAPARIB [Suspect]
     Active Substance: OLAPARIB
     Indication: Osteosarcoma
     Route: 065
  11. OLAPARIB [Suspect]
     Active Substance: OLAPARIB
     Indication: Metastases to lung
  12. OLAPARIB [Suspect]
     Active Substance: OLAPARIB
     Indication: PIK3CA-activated mutation
  13. TRABECTEDIN [Suspect]
     Active Substance: TRABECTEDIN
     Indication: PIK3CA-activated mutation
     Route: 065
  14. TRABECTEDIN [Suspect]
     Active Substance: TRABECTEDIN
     Indication: Osteosarcoma
  15. TRABECTEDIN [Suspect]
     Active Substance: TRABECTEDIN
     Indication: Metastases to lung
  16. IFOSFAMIDE [Concomitant]
     Active Substance: IFOSFAMIDE
     Indication: PIK3CA-activated mutation
     Route: 065
  17. IFOSFAMIDE [Concomitant]
     Active Substance: IFOSFAMIDE
     Indication: Osteosarcoma
  18. IFOSFAMIDE [Concomitant]
     Active Substance: IFOSFAMIDE
     Indication: Metastases to lung
  19. ETOPOSIDE [Concomitant]
     Active Substance: ETOPOSIDE
     Indication: PIK3CA-activated mutation
     Route: 065
  20. ETOPOSIDE [Concomitant]
     Active Substance: ETOPOSIDE
     Indication: Osteosarcoma
  21. ETOPOSIDE [Concomitant]
     Active Substance: ETOPOSIDE
     Indication: Metastases to lung
  22. CARBOPLATIN [Concomitant]
     Active Substance: CARBOPLATIN
     Indication: PIK3CA-activated mutation
     Route: 065
  23. CARBOPLATIN [Concomitant]
     Active Substance: CARBOPLATIN
     Indication: Osteosarcoma
  24. CARBOPLATIN [Concomitant]
     Active Substance: CARBOPLATIN
     Indication: Metastases to lung

REACTIONS (1)
  - Drug ineffective [Unknown]
